FAERS Safety Report 21739848 (Version 4)
Quarter: 2024Q1

REPORT INFORMATION
  Report Type: Other
  Country: US (occurrence: None)
  Receive Date: 20221216
  Receipt Date: 20240119
  Transmission Date: 20240410
  Serious: No
  Sender: FDA-Public Use
  Company Number: US-ROCHE-3147782

PATIENT
  Age: 73 Year
  Sex: Female
  Weight: 68.1 kg

DRUGS (12)
  1. OCREVUS [Suspect]
     Active Substance: OCRELIZUMAB
     Indication: Relapsing-remitting multiple sclerosis
     Dosage: 600 MG EVERY 6 MONTH, DATE OF TREATMENT: 25/NOV/2019, 01/JUN/2020, 20/MAY/2021, 11/NOV/2021, 12/MAY/
     Route: 042
     Dates: start: 2018
  2. IBUPROFEN [Concomitant]
     Active Substance: IBUPROFEN
     Indication: Pain
     Route: 048
  3. GABAPENTIN [Concomitant]
     Active Substance: GABAPENTIN
     Indication: Pain in extremity
     Route: 048
  4. BACLOFEN [Concomitant]
     Active Substance: BACLOFEN
     Indication: Pain
     Route: 048
  5. TRAMADOL [Concomitant]
     Active Substance: TRAMADOL\TRAMADOL HYDROCHLORIDE
  6. EZETIMIBE [Concomitant]
     Active Substance: EZETIMIBE
  7. CALCIUM [Concomitant]
     Active Substance: CALCIUM
     Route: 048
  8. ALPRAZOLAM [Concomitant]
     Active Substance: ALPRAZOLAM
     Route: 048
  9. BIOTIN [Concomitant]
     Active Substance: BIOTIN
  10. LEVOTHYROXINE SODIUM [Concomitant]
     Active Substance: LEVOTHYROXINE SODIUM
     Route: 048
  11. BUPROPION HYDROCHLORIDE [Concomitant]
     Active Substance: BUPROPION HYDROCHLORIDE
     Route: 048
  12. VITAMIN D3 [Concomitant]
     Active Substance: CHOLECALCIFEROL

REACTIONS (15)
  - Fall [Unknown]
  - Pain in extremity [Not Recovered/Not Resolved]
  - Hypoaesthesia [Unknown]
  - Paraesthesia [Unknown]
  - Fatigue [Unknown]
  - COVID-19 [Recovered/Resolved]
  - Ill-defined disorder [Not Recovered/Not Resolved]
  - Vomiting [Recovered/Resolved]
  - Food poisoning [Recovered/Resolved]
  - Hot flush [Not Recovered/Not Resolved]
  - Gait disturbance [Not Recovered/Not Resolved]
  - Visual impairment [Unknown]
  - Sciatica [Unknown]
  - Hypothyroidism [Unknown]
  - Carpal tunnel decompression [Unknown]

NARRATIVE: CASE EVENT DATE: 20220101
